FAERS Safety Report 4765478-2 (Version None)
Quarter: 2005Q3

REPORT INFORMATION
  Report Type: 
  Country: None (occurrence: None)
  Receive Date: 20050908
  Receipt Date: 20050826
  Transmission Date: 20060218
  Serious: Yes (Hospitalization)
  Sender: FDA-Public Use
  Company Number: 2005113567

PATIENT
  Age: 33 Year
  Sex: Female

DRUGS (4)
  1. CAMPTOSAR [Suspect]
     Indication: ILL-DEFINED DISORDER
     Dosage: 320 MG (SINGLE), INTRAVENOUS
     Route: 042
     Dates: start: 20050523
  2. FLUOROURACIL [Concomitant]
  3. GRANISETRON HYDROCHLORIDE (GRANISETRON HYDROCHLORIDE) [Concomitant]
  4. CALCIUM FOLINATE (CALICUM FOLINATE) [Concomitant]

REACTIONS (4)
  - CYTOLYTIC HEPATITIS [None]
  - GENERAL PHYSICAL HEALTH DETERIORATION [None]
  - HYPERTHERMIA [None]
  - INFLUENZA LIKE ILLNESS [None]
